FAERS Safety Report 6708177-X (Version None)
Quarter: 2010Q2

REPORT INFORMATION
  Report Type: 
  Country: None (occurrence: None)
  Receive Date: 20100503
  Receipt Date: 20090605
  Transmission Date: 20101027
  Serious: No
  Sender: FDA-Public Use
  Company Number: CO-ASTRAZENECA-2009UW14662

PATIENT
  Sex: Male

DRUGS (2)
  1. NEXIUM [Suspect]
     Route: 048
  2. PRILOSEC OTC [Suspect]
     Dosage: 1 TABLET
     Route: 048

REACTIONS (1)
  - ABDOMINAL PAIN UPPER [None]
